FAERS Safety Report 5042758-7 (Version None)
Quarter: 2006Q2

REPORT INFORMATION
  Report Type: 
  Country: None (occurrence: None)
  Receive Date: 20060627
  Receipt Date: 20060614
  Transmission Date: 20061013
  Serious: Yes (Other)
  Sender: FDA-Public Use
  Company Number: 2006044039

PATIENT
  Age: 77 Year
  Sex: Male

DRUGS (11)
  1. VIAGRA [Suspect]
     Indication: ERECTILE DYSFUNCTION
     Dosage: 50 MG, AS NECESSARY), ORAL
     Route: 048
     Dates: start: 20041201
  2. COLECALCIFEROL (COLECALCIFEROL) [Concomitant]
  3. INDAPAMIDE [Concomitant]
  4. CALCIUM CARBONATE [Concomitant]
  5. LANSOPRAZOLE [Concomitant]
  6. POTASSIUM CHLORIDE [Concomitant]
     Indication: ERECTILE DYSFUNCTION
     Dosage: 50 MG, AS NECESSARY, ORAL
     Route: 048
     Dates: start: 20041201
  7. COLECALCIFEROL (COLECALCIFEROL) [Concomitant]
  8. INDAPAMIDE [Concomitant]
  9. CALCIUM CARBONATE (CALCIUM CARBONATE) [Concomitant]
  10. LANSOPRAZOLE [Concomitant]
  11. POTASSIUM CHLORIDE [Concomitant]

REACTIONS (5)
  - DIPLOPIA [None]
  - NERVOUS SYSTEM DISORDER [None]
  - OPTIC ISCHAEMIC NEUROPATHY [None]
  - SCOTOMA [None]
  - VISUAL FIELD DEFECT [None]
